FAERS Safety Report 7545794-1 (Version None)
Quarter: 2011Q2

REPORT INFORMATION
  Report Type: 
  Country: None (occurrence: None)
  Receive Date: 20110524
  Receipt Date: 20110322
  Transmission Date: 20111010
  Serious: No
  Sender: FDA-Public Use
  Company Number: 028829

PATIENT
  Sex: Female
  Weight: 57.9 kg

DRUGS (6)
  1. CALCIUM CARBONATE [Concomitant]
  2. VITAMIN C /00008001/ [Concomitant]
  3. PENTASA [Concomitant]
  4. CIMZIA [Suspect]
     Indication: CROHN'S DISEASE
     Dosage: (INDUCTION DOSE SUBCUTANEOUS) ; (400 MG 1X/MONTH SUBCUTANEOUS)
     Route: 058
     Dates: start: 20101210
  5. CIMZIA [Suspect]
     Indication: CROHN'S DISEASE
     Dosage: (INDUCTION DOSE SUBCUTANEOUS) ; (400 MG 1X/MONTH SUBCUTANEOUS)
     Route: 058
     Dates: start: 20110201
  6. NABUMETONE [Concomitant]

REACTIONS (3)
  - NASOPHARYNGITIS [None]
  - ABDOMINAL PAIN [None]
  - DRUG INEFFECTIVE [None]
